FAERS Safety Report 4952010-3 (Version None)
Quarter: 2006Q1

REPORT INFORMATION
  Report Type: 
  Country: None (occurrence: None)
  Receive Date: 20060320
  Receipt Date: 20060307
  Transmission Date: 20060701
  Serious: Yes (Other)
  Sender: FDA-Public Use
  Company Number: 2006034075

PATIENT
  Age: 62 Year
  Sex: Female

DRUGS (1)
  1. FELDENE [Suspect]
     Indication: ILL-DEFINED DISORDER
     Dosage: 20 MG , ORAL
     Route: 048

REACTIONS (5)
  - BLINDNESS [None]
  - DYSPEPSIA [None]
  - HYPOACUSIS [None]
  - INJURY [None]
  - TOXIC EPIDERMAL NECROLYSIS [None]
